FAERS Safety Report 8825357 (Version 1)
Quarter: 2012Q4

REPORT INFORMATION
  Report Type: 
  Country: US (occurrence: US)
  Receive Date: 20121004
  Receipt Date: 20121004
  Transmission Date: 20130627
  Serious: Yes (Death)
  Sender: FDA-Public Use
  Company Number: US-ROCHE-1129987

PATIENT
  Sex: Female

DRUGS (7)
  1. RITUXAN [Suspect]
     Indication: HAIRY CELL LEUKAEMIA
     Dosage: 645 mg
     Route: 065
     Dates: start: 19991020
  2. RITUXAN [Suspect]
     Indication: OFF LABEL USE
  3. HYDROCORTISONE [Concomitant]
     Route: 042
  4. BENADRYL [Concomitant]
     Route: 042
  5. TAGAMET [Concomitant]
     Route: 042
  6. TYLENOL [Concomitant]
     Route: 048
  7. DEMEROL [Concomitant]
     Dosage: 25-50 mg
     Route: 042

REACTIONS (1)
  - Death [Fatal]
